FAERS Safety Report 5274583-6 (Version None)
Quarter: 2007Q1

REPORT INFORMATION
  Report Type: 
  Country: None (occurrence: None)
  Receive Date: 20070320
  Receipt Date: 20070302
  Transmission Date: 20070707
  Serious: Yes (Hospitalization)
  Sender: FDA-Public Use
  Company Number: 238258

PATIENT
  Age: 45 Year
  Sex: Female

DRUGS (2)
  1. HERCEPTIN [Suspect]
     Indication: BREAST CANCER
     Dates: start: 20061211, end: 20070208
  2. INTERFERON BETA-1B(INTERFERON BETA-1B) [Suspect]
     Indication: MULTIPLE SCLEROSIS
     Dates: start: 20051110

REACTIONS (13)
  - BACTERIAL INFECTION [None]
  - CHRONIC OBSTRUCTIVE PULMONARY DISEASE [None]
  - CONDITION AGGRAVATED [None]
  - CORONARY ARTERY DISEASE [None]
  - CULTURE URINE POSITIVE [None]
  - CYTOTOXIC CARDIOMYOPATHY [None]
  - HYPERTENSION [None]
  - HYPOPARATHYROIDISM [None]
  - MITRAL VALVE INCOMPETENCE [None]
  - PLEURAL EFFUSION [None]
  - TRICUSPID VALVE INCOMPETENCE [None]
  - VENTRICULAR DYSFUNCTION [None]
  - VENTRICULAR HYPERTROPHY [None]
